FAERS Safety Report 23600644 (Version 1)
Quarter: 2024Q1

REPORT INFORMATION
  Report Type: Spontaneous
  Country: US (occurrence: US)
  Receive Date: 20240306
  Receipt Date: 20240306
  Transmission Date: 20240410
  Serious: Yes (Death, Hospitalization)
  Sender: FDA-Public Use
  Company Number: US-MYLANLABS-2024M1020342

PATIENT
  Age: 74 Year
  Sex: Female

DRUGS (1)
  1. GEMCITABINE [Suspect]
     Active Substance: GEMCITABINE
     Indication: Adenocarcinoma pancreas
     Dosage: UNK
     Route: 065

REACTIONS (5)
  - Thrombotic microangiopathy [Fatal]
  - Septic shock [Fatal]
  - Renal impairment [Unknown]
  - Respiratory distress [Unknown]
  - Hypervolaemia [Unknown]
